FAERS Safety Report 5032061-3 (Version None)
Quarter: 2006Q2

REPORT INFORMATION
  Report Type: 
  Country: None (occurrence: None)
  Receive Date: 20060619
  Receipt Date: 20060606
  Transmission Date: 20061013
  Serious: Yes (Death)
  Sender: FDA-Public Use
  Company Number: WAES 0606USA01583

PATIENT
  Sex: Male

DRUGS (1)
  1. FOSAMAX [Suspect]
     Indication: OSTEITIS DEFORMANS
     Dosage: 80 MG/DAILY/PO
     Route: 048

REACTIONS (1)
  - BONE NEOPLASM MALIGNANT [None]
